FAERS Safety Report 12783478 (Version 1)
Quarter: 2016Q3

REPORT INFORMATION
  Report Type: Spontaneous
  Country: US (occurrence: US)
  Receive Date: 20160927
  Receipt Date: 20160927
  Transmission Date: 20161109
  Serious: No
  Sender: FDA-Public Use
  Company Number: None

PATIENT
  Age: 60 Year
  Sex: Female
  Weight: 56.25 kg

DRUGS (1)
  1. HYOSCYAMINE. [Suspect]
     Active Substance: HYOSCYAMINE
     Indication: IRRITABLE BOWEL SYNDROME
     Route: 060
     Dates: start: 20160108, end: 20160926

REACTIONS (6)
  - Product substitution issue [None]
  - Heart rate increased [None]
  - Vision blurred [None]
  - Anxiety [None]
  - Diarrhoea [None]
  - Product use issue [None]

NARRATIVE: CASE EVENT DATE: 20160810
